FAERS Safety Report 10037904 (Version 1)
Quarter: 2014Q1

REPORT INFORMATION
  Report Type: Spontaneous
  Country: JP (occurrence: JP)
  Receive Date: 20140326
  Receipt Date: 20140326
  Transmission Date: 20141002
  Serious: Yes (Hospitalization, Other)
  Sender: FDA-Public Use
  Company Number: JP-SA-2014SA036981

PATIENT
  Sex: Female

DRUGS (10)
  1. MYSLEE [Suspect]
     Indication: SUICIDE ATTEMPT
     Route: 048
     Dates: start: 20140310, end: 20140310
  2. OTHER ANTIHYPERTENSIVES [Concomitant]
     Indication: SUICIDE ATTEMPT
     Dates: start: 20140310, end: 20140310
  3. ANTIARRHYTHMICS, CLASS I AND III [Concomitant]
     Indication: SUICIDE ATTEMPT
     Dates: start: 20140310, end: 20140310
  4. ANTITHROMBOTIC AGENTS [Concomitant]
     Indication: SUICIDE ATTEMPT
     Dates: start: 20140310, end: 20140310
  5. OTHER ANTIHYPERTENSIVES [Concomitant]
     Indication: SUICIDE ATTEMPT
     Dates: start: 20140310, end: 20140310
  6. ANTIDEPRESSANTS [Concomitant]
     Indication: SUICIDE ATTEMPT
     Dates: start: 20140310, end: 20140310
  7. ANTIDEPRESSANTS [Concomitant]
     Indication: SUICIDE ATTEMPT
     Dates: start: 20140310, end: 20140310
  8. HYPNOTICS AND SEDATIVES [Concomitant]
     Indication: SUICIDE ATTEMPT
     Dates: start: 20140310, end: 20140310
  9. HYPNOTICS AND SEDATIVES [Concomitant]
     Indication: SUICIDE ATTEMPT
     Dates: start: 20140310, end: 20140310
  10. HYPNOTICS AND SEDATIVES [Concomitant]
     Indication: SUICIDE ATTEMPT
     Dates: start: 20140310, end: 20140310

REACTIONS (5)
  - Suicide attempt [Unknown]
  - Haemorrhage [Not Recovered/Not Resolved]
  - Blood pressure decreased [Not Recovered/Not Resolved]
  - Dizziness [Not Recovered/Not Resolved]
  - Intentional overdose [Unknown]
